FAERS Safety Report 9633314 (Version 1)
Quarter: 2013Q4

REPORT INFORMATION
  Report Type: Spontaneous
  Country: US (occurrence: US)
  Receive Date: 20131021
  Receipt Date: 20131021
  Transmission Date: 20140711
  Serious: Yes (Other)
  Sender: FDA-Public Use
  Company Number: US-PFIZER INC-2013297836

PATIENT
  Age: 36 Year
  Sex: Female
  Weight: 99.77 kg

DRUGS (3)
  1. GABAPENTIN [Suspect]
     Indication: ARTHRITIS
     Dosage: 300 MG, 3X/DAY
     Dates: start: 201006, end: 201207
  2. LYRICA [Suspect]
     Indication: FIBROMYALGIA
     Dosage: 200 MG, 3X/DAY
     Dates: start: 201207
  3. TRAZODONE [Concomitant]
     Indication: SLEEP DISORDER
     Dosage: 150 MG, AS NEEDED

REACTIONS (3)
  - Off label use [Unknown]
  - Intervertebral disc protrusion [Unknown]
  - Drug ineffective for unapproved indication [Unknown]
